FAERS Safety Report 6599782-2 (Version None)
Quarter: 2010Q1

REPORT INFORMATION
  Report Type: 
  Country: None (occurrence: None)
  Receive Date: 20100224
  Receipt Date: 20100219
  Transmission Date: 20100710
  Serious: Yes (Other)
  Sender: FDA-Public Use
  Company Number: PHEH2008US05098

PATIENT
  Sex: Female

DRUGS (36)
  1. AREDIA [Suspect]
  2. ZOMETA [Suspect]
     Dosage: UNK
     Dates: start: 20010101
  3. FASLODEX [Concomitant]
     Dosage: UNK
  4. METHADONE [Concomitant]
  5. CYMBALTA [Concomitant]
  6. XANAX [Concomitant]
  7. MS CONTIN [Concomitant]
  8. VICODIN [Concomitant]
  9. ELAVIL [Concomitant]
  10. SINGULAIR [Concomitant]
  11. ELMIRON [Concomitant]
  12. VAGIFEM [Concomitant]
  13. FASLODEX [Concomitant]
  14. CENTRUM SILVER [Concomitant]
  15. PROTONIX [Concomitant]
  16. VITAMIN C [Concomitant]
  17. CALCIUM [Concomitant]
  18. OXYCONTIN [Concomitant]
  19. NORVASC [Concomitant]
  20. OMEPRAZOLE [Concomitant]
  21. LIMBREL [Concomitant]
  22. GABAPENTIN [Concomitant]
  23. FENTANYL-100 [Concomitant]
  24. LASIX [Concomitant]
  25. CIPRO [Concomitant]
  26. BENADRYL ^ACHE^ [Concomitant]
  27. POTASSIUM [Concomitant]
  28. AVELOX [Concomitant]
  29. UROCIT-K [Concomitant]
  30. DILAUDID [Concomitant]
  31. ACIPHEX [Concomitant]
  32. NEURONTIN [Concomitant]
  33. ROBAXIN [Concomitant]
  34. TOPRAL [Concomitant]
  35. ARIXTRA [Concomitant]
  36. DOXYCYCLINE [Concomitant]

REACTIONS (50)
  - ACCIDENTAL OVERDOSE [None]
  - ANXIETY [None]
  - ARTHRALGIA [None]
  - BACK PAIN [None]
  - BLADDER OPERATION [None]
  - BONE DISORDER [None]
  - CARDIAC FAILURE CONGESTIVE [None]
  - CHONDROMALACIA [None]
  - CYSTITIS [None]
  - DEFORMITY [None]
  - DIZZINESS [None]
  - DRY MOUTH [None]
  - DYSPHAGIA [None]
  - EAR PAIN [None]
  - EMOTIONAL DISTRESS [None]
  - EYE INFECTION [None]
  - EYE PAIN [None]
  - FACIAL BONES FRACTURE [None]
  - FALL [None]
  - FEMUR FRACTURE [None]
  - GLOSSITIS [None]
  - GROIN PAIN [None]
  - HAEMOLYTIC ANAEMIA [None]
  - HAND FRACTURE [None]
  - HIATUS HERNIA [None]
  - HYPERKERATOSIS [None]
  - HYPERTONIC BLADDER [None]
  - HYPOAESTHESIA [None]
  - INFECTION [None]
  - INJURY [None]
  - INSOMNIA [None]
  - IRRITABLE BOWEL SYNDROME [None]
  - JOINT EFFUSION [None]
  - METASTASES TO LIVER [None]
  - METASTASES TO LUNG [None]
  - MOUTH ULCERATION [None]
  - NECK PAIN [None]
  - NEURALGIA [None]
  - OSTEOARTHRITIS [None]
  - OSTEONECROSIS [None]
  - PAIN [None]
  - PAIN IN EXTREMITY [None]
  - PAIN IN JAW [None]
  - PULMONARY OEDEMA [None]
  - PYREXIA [None]
  - RESPIRATORY DISTRESS [None]
  - SINUS HEADACHE [None]
  - SLEEP APNOEA SYNDROME [None]
  - SYNOVIAL CYST [None]
  - TONGUE ULCERATION [None]
